FAERS Safety Report 20907144 (Version 1)
Quarter: 2022Q2

REPORT INFORMATION
  Report Type: Spontaneous
  Country: US (occurrence: None)
  Receive Date: 20220602
  Receipt Date: 20220602
  Transmission Date: 20220720
  Serious: Yes (Hospitalization)
  Sender: FDA-Public Use
  Company Number: None

PATIENT
  Sex: Male

DRUGS (4)
  1. TACROLIMUS [Suspect]
     Active Substance: TACROLIMUS
  2. AZATHIOPRINE [Concomitant]
  3. LIPITOR TAB [Concomitant]
  4. PLAVIX TAB [Concomitant]

REACTIONS (1)
  - Surgery [None]
